FAERS Safety Report 8065023-2 (Version None)
Quarter: 2012Q1

REPORT INFORMATION
  Report Type: 
  Country: None (occurrence: None)
  Receive Date: 20120124
  Receipt Date: 20120116
  Transmission Date: 20120608
  Serious: Yes (Other)
  Sender: FDA-Public Use
  Company Number: US-PAR PHARMACEUTICAL, INC-2011SCPR003562

PATIENT

DRUGS (7)
  1. PAMIDRONATE DISODIUM [Suspect]
     Indication: MULTIPLE MYELOMA
     Dosage: 90 MG, MONTHLY
     Route: 042
  2. CLARITHROMYCIN [Concomitant]
     Indication: MULTIPLE MYELOMA
     Dosage: UNK, / DAY
     Route: 048
     Dates: start: 20050901
  3. DEXAMETHASONE TAB [Suspect]
     Indication: MULTIPLE MYELOMA
     Dosage: UNK, UNKNOWN 3 CYCLES
     Route: 065
  4. VINCRISTINE [Concomitant]
     Indication: MULTIPLE MYELOMA
     Dosage: 3 CYCLES, UNKNOWN
     Route: 065
  5. DEXAMETHASONE TAB [Suspect]
     Dosage: UNK, UNKNOWN
     Route: 048
     Dates: start: 19970101
  6. CHEMOTHERAPEUTICS [Concomitant]
     Indication: MULTIPLE MYELOMA
     Dosage: UNK, UNKNOWN
     Route: 065
     Dates: start: 19970801
  7. DOXORUBICIN HCL [Concomitant]
     Indication: MULTIPLE MYELOMA
     Dosage: 3 CYCLES, UNKNOWN
     Route: 065

REACTIONS (2)
  - NEUROPATHY PERIPHERAL [None]
  - STRESS FRACTURE [None]
